FAERS Safety Report 8473319-5 (Version None)
Quarter: 2012Q2

REPORT INFORMATION
  Report Type: 
  Country: None (occurrence: None)
  Receive Date: 20120628
  Receipt Date: 20120613
  Transmission Date: 20120825
  Serious: Yes (Disabling, Other)
  Sender: FDA-Public Use
  Company Number: US-DENTSPLY-2012SCDP002953

PATIENT
  Sex: Female

DRUGS (2)
  1. SEPTOCAINE                         /01355701/ [Suspect]
     Indication: LOCAL ANAESTHESIA
     Dosage: UNK
     Route: 004
     Dates: start: 20100610, end: 20100610
  2. CITANEST PLAIN DENTAL [Suspect]
     Dosage: UNK
     Route: 004
     Dates: start: 20100610, end: 20100610

REACTIONS (2)
  - NERVE INJURY [None]
  - HYPOAESTHESIA ORAL [None]
